FAERS Safety Report 7996117-5 (Version None)
Quarter: 2011Q4

REPORT INFORMATION
  Report Type: 
  Country: None (occurrence: None)
  Receive Date: 20111220
  Receipt Date: 20111213
  Transmission Date: 20120403
  Serious: Yes (Life-Threatening, Hospitalization, Disabling)
  Sender: FDA-Public Use
  Company Number: PHHY2010JP05882

PATIENT
  Sex: Male

DRUGS (24)
  1. TASIGNA [Suspect]
     Indication: CHRONIC MYELOID LEUKAEMIA
     Dosage: 400 MG, DAILY
     Route: 048
     Dates: start: 20090525, end: 20090809
  2. TASIGNA [Suspect]
     Dosage: 600 MG, DAILY
     Route: 048
     Dates: start: 20090810, end: 20091025
  3. WARFARIN SODIUM [Concomitant]
     Dosage: 2 MG DAILY
     Dates: start: 20090915
  4. TASIGNA [Suspect]
     Dosage: 800 MG, DAILY
     Route: 048
     Dates: start: 20091026, end: 20091107
  5. TASIGNA [Suspect]
     Dosage: 400 MG, DAILY
     Route: 048
     Dates: start: 20091110, end: 20100222
  6. TASIGNA [Suspect]
     Dosage: 600 MG, DAILY
     Route: 048
     Dates: start: 20110307, end: 20110412
  7. TASIGNA [Suspect]
     Dosage: 800 MG, DAILY
     Route: 048
     Dates: start: 20100712, end: 20100905
  8. TASIGNA [Suspect]
     Dosage: 400 MG, DAILY
     Route: 048
     Dates: start: 20110131, end: 20110306
  9. FOLIC ACID [Concomitant]
     Dosage: 2 DF, UNK
     Route: 048
     Dates: start: 20100506, end: 20100610
  10. CLONAZEPAM [Concomitant]
     Dosage: 0.5 MG, UNK
     Route: 048
     Dates: start: 20100515, end: 20100910
  11. BEZATOL - SLOW RELEASE [Concomitant]
     Dosage: 400 MG, UNK
     Route: 048
  12. EPLERENONE [Concomitant]
     Indication: HYPERTENSION
     Dosage: 25 MG, UNK
     Route: 048
     Dates: start: 20090331, end: 20100430
  13. ACETAMINOPHEN [Concomitant]
     Dosage: 500 MG, UNK
     Route: 048
     Dates: start: 20100428
  14. TASIGNA [Suspect]
     Dosage: 600 MG, DAILY
     Route: 048
     Dates: start: 20100223
  15. TASIGNA [Suspect]
     Dosage: 600 MG, DAILY
     Route: 048
     Dates: start: 20100906, end: 20100916
  16. NORVASC [Concomitant]
     Dosage: 7.5 MG, UNK
     Route: 048
  17. LOSARTAN POTASSIUM [Concomitant]
     Dosage: 2.5 MG, UNK
     Route: 048
  18. ALLOPURINOL [Concomitant]
     Dosage: 1 DF, UNK
     Route: 048
  19. TASIGNA [Suspect]
     Dosage: 200 MG, DAILY
     Route: 048
     Dates: start: 20101004, end: 20110130
  20. TASIGNA [Suspect]
     Dosage: 200 MG, DAILY
     Route: 048
     Dates: start: 20110628, end: 20110630
  21. WARFARIN SODIUM [Concomitant]
     Dosage: 1.5 MG, UNK
     Route: 048
  22. LASIX [Concomitant]
     Dosage: 10 MG, UNK
     Route: 048
  23. PENTAZOCINE LACTATE [Concomitant]
     Dosage: 25 MG, UNK
     Route: 048
     Dates: start: 20100506
  24. TASIGNA [Suspect]
     Dosage: 600 MG, DAILY
     Route: 048
     Dates: start: 20100628, end: 20100711

REACTIONS (13)
  - SEPTIC SHOCK [None]
  - OEDEMA PERIPHERAL [None]
  - MALAISE [None]
  - MUSCLE SPASMS [None]
  - CARDIAC FAILURE CONGESTIVE [None]
  - DYSCHEZIA [None]
  - HYPOPHOSPHATAEMIA [None]
  - HYPOTHYROIDISM [None]
  - PAIN IN EXTREMITY [None]
  - GASTROINTESTINAL HAEMORRHAGE [None]
  - PROTHROMBIN TIME RATIO INCREASED [None]
  - MUSCULAR WEAKNESS [None]
  - GAIT DISTURBANCE [None]
